FAERS Safety Report 18842781 (Version 1)
Quarter: 2021Q1

REPORT INFORMATION
  Report Type: Spontaneous
  Country: US (occurrence: US)
  Receive Date: 20210203
  Receipt Date: 20210203
  Transmission Date: 20210419
  Serious: Yes (Other)
  Sender: FDA-Public Use
  Company Number: US-ELI_LILLY_AND_COMPANY-US202102000542

PATIENT
  Sex: Male

DRUGS (1)
  1. SELPERCATINIB 80MG [Suspect]
     Active Substance: SELPERCATINIB
     Indication: LUNG NEOPLASM MALIGNANT
     Dosage: 160 MG, BID
     Route: 048

REACTIONS (5)
  - Alanine aminotransferase increased [Unknown]
  - Oropharyngeal pain [Unknown]
  - Blood alkaline phosphatase increased [Unknown]
  - Stomatitis [Unknown]
  - Aspartate aminotransferase increased [Unknown]
